FAERS Safety Report 8824681 (Version 1)
Quarter: 2012Q4

REPORT INFORMATION
  Report Type: 
  Country: BR (occurrence: BR)
  Receive Date: 20121004
  Receipt Date: 20121004
  Transmission Date: 20130627
  Serious: Yes (Other)
  Sender: FDA-Public Use
  Company Number: BR-GENZYME-FABR-1002774

PATIENT
  Age: 38 Year
  Sex: Female
  Weight: 66 kg

DRUGS (1)
  1. FABRAZYME [Suspect]
     Indication: FABRY^S DISEASE
     Dosage: UNK
     Route: 042

REACTIONS (3)
  - Transient ischaemic attack [Unknown]
  - Diabetes mellitus [Unknown]
  - Migraine [Unknown]
